FAERS Safety Report 10209492 (Version 2)
Quarter: 2014Q2

REPORT INFORMATION
  Report Type: Report from Study
  Country: US (occurrence: US)
  Receive Date: 20140601
  Receipt Date: 20140607
  Transmission Date: 20141212
  Serious: Yes (Other)
  Sender: FDA-Public Use
  Company Number: PHEH2014US010697

PATIENT
  Sex: Female

DRUGS (12)
  1. DIOVAN [Suspect]
     Dosage: 80 MG, UNK
     Route: 048
  2. DIOVAN [Suspect]
     Dosage: 160 MG, UNK
     Route: 048
  3. DIOVAN HCT [Suspect]
     Dosage: UNK UKN, UNK
  4. VALSARTAN/HYDROCHLOROTHIAZIDE [Suspect]
     Indication: HYPERTENSION
     Dosage: 80 MG, QD
     Route: 048
  5. NORVASC [Concomitant]
     Dosage: 10 MG, UNK
  6. NEXIUM [Concomitant]
     Dosage: UNK UKN, UNK
  7. CHOLESTEROL [Concomitant]
     Dosage: UNK UKN, UNK
  8. PRAVASTATIN [Concomitant]
     Dosage: 30 MG, BID
  9. CLONAZEPAM [Concomitant]
     Dosage: 10 MG, BID
  10. AMLODIPINE [Concomitant]
     Dosage: UNK UKN, UNK
  11. PAXIL [Concomitant]
     Dosage: UNK UKN, UNK
  12. ASA [Concomitant]
     Dosage: UNK UKN, UNK

REACTIONS (6)
  - Loss of consciousness [Unknown]
  - Movement disorder [Unknown]
  - Head discomfort [Unknown]
  - Dizziness [Unknown]
  - Blood pressure increased [Unknown]
  - Drug ineffective [Unknown]
